FAERS Safety Report 4394940-X (Version None)
Quarter: 2004Q3

REPORT INFORMATION
  Report Type: 
  Country: None (occurrence: None)
  Receive Date: 20040712
  Receipt Date: 20040629
  Transmission Date: 20050211
  Serious: Yes (Other)
  Sender: FDA-Public Use
  Company Number: GB-GLAXOSMITHKLINE-B0337320A

PATIENT
  Age: 36 Year
  Sex: Female
  Weight: 2 kg

DRUGS (2)
  1. PAROXETINE HCL [Suspect]
     Indication: DEPRESSION
     Route: 048
     Dates: start: 20020911, end: 20040601
  2. THYROXINE [Concomitant]
     Indication: HYPOTHYROIDISM
     Dosage: 100MCG PER DAY
     Route: 048
     Dates: start: 20010925

REACTIONS (5)
  - DISTURBANCE IN ATTENTION [None]
  - DRUG WITHDRAWAL SYNDROME [None]
  - FEELING ABNORMAL [None]
  - IRRITABILITY [None]
  - NAUSEA [None]
